FAERS Safety Report 7871882 (Version 4)
Quarter: 2012Q4

REPORT INFORMATION
  Report Type: Report from Study
  Country: FR (occurrence: FR)
  Receive Date: 20110325
  Receipt Date: 20121018
  Transmission Date: 20130627
  Serious: Yes (Death, Life-Threatening, Hospitalization, Disabling)
  Sender: FDA-Public Use
  Company Number: FR-ROCHE-753974

PATIENT
  Age: 65 Year
  Sex: Male
  Weight: 68 kg

DRUGS (33)
  1. MYCOPHENOLATE MOFETIL [Suspect]
     Indication: TRANSPLANT REJECTION
     Dosage: FREQUENCY: EVERYDAY. TEMPORARILY INTERRUPTED
     Route: 048
     Dates: start: 20110115, end: 20110209
  2. MYCOPHENOLATE MOFETIL [Suspect]
     Dosage: PERMANENTLY DISCONTINUED. DATE OF LAST DOSE PRIOR TO SAE: 08 MARCH 2011.
     Route: 048
     Dates: start: 20110301, end: 20110308
  3. PREDNISONE [Suspect]
     Indication: TRANSPLANT REJECTION
     Route: 048
  4. PREDNISONE [Suspect]
     Dosage: DATE OF LAST DOSE PRIOR TO SAE: 16 MARCH 2011.
     Route: 048
  5. CICLOSPORIN [Suspect]
     Indication: TRANSPLANT REJECTION
     Route: 048
     Dates: start: 20110117, end: 20110201
  6. CICLOSPORIN [Suspect]
     Route: 047
  7. METHYLPREDNISOLONE [Suspect]
     Indication: TRANSPLANT REJECTION
     Route: 042
     Dates: start: 20110115, end: 20110115
  8. BASILIXIMAB [Suspect]
     Indication: TRANSPLANT REJECTION
     Route: 065
     Dates: start: 20110115, end: 20110115
  9. CERTICAN [Suspect]
     Indication: PRODUCT USED FOR UNKNOWN INDICATION
     Route: 065
     Dates: start: 20110202, end: 20110209
  10. BACTRIM [Suspect]
     Route: 065
     Dates: start: 20110124, end: 20110201
  11. ROVALCYTE [Suspect]
     Dosage: TWICE A WEEK
     Route: 065
     Dates: start: 20110129, end: 20110201
  12. AZANTAC [Suspect]
     Route: 065
     Dates: start: 20110202, end: 20110209
  13. INEXIUM [Suspect]
     Route: 065
     Dates: start: 20110116, end: 20110201
  14. ADANCOR [Concomitant]
     Route: 065
  15. ADANCOR [Concomitant]
     Route: 065
  16. NITRIDERM [Concomitant]
     Route: 065
  17. CALCIDIA [Concomitant]
     Route: 065
  18. CALCIDIA [Concomitant]
     Route: 065
     Dates: start: 20110305, end: 20110313
  19. LASILIX [Concomitant]
     Route: 065
     Dates: start: 20110120, end: 20110207
  20. LASILIX [Concomitant]
     Route: 065
     Dates: start: 20110222, end: 20110306
  21. NORSET [Concomitant]
     Route: 065
     Dates: start: 20110130, end: 20110204
  22. AMLOR [Concomitant]
     Route: 065
     Dates: start: 20110120, end: 20110208
  23. INSULATARD [Concomitant]
     Route: 065
  24. ECONAZOLE [Concomitant]
     Route: 065
     Dates: start: 20110131, end: 20110208
  25. SODIUM BICARBONATE [Concomitant]
     Route: 065
  26. IMODIUM [Concomitant]
     Route: 065
     Dates: start: 20110209, end: 20110213
  27. DIOSMECTITE [Concomitant]
     Route: 065
     Dates: start: 20110209, end: 20110213
  28. POTASSIUM [Concomitant]
     Dosage: DOSE: 440 MG/15ML/4DAY
     Route: 065
     Dates: start: 20110209, end: 20110213
  29. POTASSIUM [Concomitant]
     Route: 065
     Dates: start: 20110308, end: 20110311
  30. EPREX [Concomitant]
     Dosage: TDD: 6000U
     Route: 065
  31. KARDEGIC [Concomitant]
     Route: 065
  32. AMOXICILLIN [Concomitant]
     Route: 065
     Dates: start: 20110214, end: 20110306
  33. XATRAL [Concomitant]
     Route: 065

REACTIONS (10)
  - Bronchial obstruction [Fatal]
  - Malnutrition [Fatal]
  - Culture wound positive [Fatal]
  - Thrombocytopenia [Fatal]
  - Anastomotic haemorrhage [Recovered/Resolved]
  - Escherichia sepsis [Recovered/Resolved]
  - Complications of transplanted kidney [Recovered/Resolved with Sequelae]
  - Wound dehiscence [Recovered/Resolved]
  - Unevaluable event [Recovered/Resolved]
  - Renal impairment [Recovered/Resolved]
